FAERS Safety Report 6175063-6 (Version None)
Quarter: 2009Q2

REPORT INFORMATION
  Report Type: 
  Country: None (occurrence: None)
  Receive Date: 20090430
  Receipt Date: 20090216
  Transmission Date: 20091009
  Serious: No
  Sender: FDA-Public Use
  Company Number: US-ASTRAZENECA-2009UW04413

PATIENT
  Age: 9446 Day
  Sex: Female
  Weight: 74.4 kg

DRUGS (2)
  1. NEXIUM [Suspect]
     Indication: GASTROOESOPHAGEAL REFLUX DISEASE
     Route: 048
     Dates: start: 20090213
  2. PEPCID [Concomitant]
     Indication: GASTROOESOPHAGEAL REFLUX DISEASE

REACTIONS (5)
  - HEADACHE [None]
  - NECK PAIN [None]
  - OROPHARYNGEAL PAIN [None]
  - SWELLING [None]
  - THROAT IRRITATION [None]
